FAERS Safety Report 9727166 (Version 1)
Quarter: 2013Q4

REPORT INFORMATION
  Report Type: Spontaneous
  Country: US (occurrence: US)
  Receive Date: 20131203
  Receipt Date: 20131203
  Transmission Date: 20140711
  Serious: No
  Sender: FDA-Public Use
  Company Number: US-BRISTOL-MYERS SQUIBB COMPANY-19227438

PATIENT
  Age: 52 Year
  Sex: Male
  Weight: 106.57 kg

DRUGS (2)
  1. KOMBIGLYZE XR [Suspect]
     Dosage: INTER ON UNK DATE AND RESTARTED ON UNK DATE
  2. METFORMIN HCL [Suspect]

REACTIONS (3)
  - Muscle spasms [Unknown]
  - Blood glucose abnormal [Unknown]
  - Peripheral coldness [Unknown]
